FAERS Safety Report 5053854-2 (Version None)
Quarter: 2006Q3

REPORT INFORMATION
  Report Type: 
  Country: None (occurrence: None)
  Receive Date: 20060718
  Receipt Date: 20060711
  Transmission Date: 20061208
  Serious: Yes (Other)
  Sender: FDA-Public Use
  Company Number: CH-GLAXOSMITHKLINE-B0431394A

PATIENT
  Age: 53 Year
  Sex: Female

DRUGS (4)
  1. AVANDAMET [Suspect]
     Dosage: 1TAB PER DAY
     Route: 048
     Dates: start: 20060601
  2. KLIOGEST [Concomitant]
     Dosage: 1TAB PER DAY
     Route: 048
  3. ENALAPRIL MALEATE [Concomitant]
     Dosage: 20MG PER DAY
     Route: 048
  4. METFORMIN [Concomitant]

REACTIONS (2)
  - MENORRHAGIA [None]
  - POSTMENOPAUSAL HAEMORRHAGE [None]
